FAERS Safety Report 18507423 (Version 1)
Quarter: 2020Q4

REPORT INFORMATION
  Report Type: Spontaneous
  Country: PL (occurrence: PL)
  Receive Date: 20201116
  Receipt Date: 20201116
  Transmission Date: 20210114
  Serious: Yes (Hospitalization)
  Sender: FDA-Public Use
  Company Number: PL-OTSUKA-2020_028071

PATIENT
  Age: 34 Year
  Sex: Female

DRUGS (5)
  1. OLANZAPINE. [Suspect]
     Active Substance: OLANZAPINE
     Dosage: 20 MG, QD
     Route: 065
  2. ARIPIPRAZOLE. [Suspect]
     Active Substance: ARIPIPRAZOLE
     Dosage: 25 MG, QD
     Route: 065
  3. ARIPIPRAZOLE. [Suspect]
     Active Substance: ARIPIPRAZOLE
     Indication: PSYCHOTIC DISORDER
     Dosage: 25 MG, QD
     Route: 065
  4. ARIPIPRAZOLE. [Suspect]
     Active Substance: ARIPIPRAZOLE
     Dosage: 10 MG, QD
     Route: 065
  5. OLANZAPINE. [Suspect]
     Active Substance: OLANZAPINE
     Indication: PSYCHOTIC DISORDER
     Dosage: 5 MG, QD
     Route: 065

REACTIONS (7)
  - Mental impairment [Recovered/Resolved]
  - Drug ineffective [Unknown]
  - Patient dissatisfaction with treatment [Recovered/Resolved]
  - Product use in unapproved indication [Unknown]
  - Hypersomnia [Recovered/Resolved]
  - Treatment noncompliance [Unknown]
  - Delusion [Recovered/Resolved]
